FAERS Safety Report 23266490 (Version 1)
Quarter: 2023Q4

REPORT INFORMATION
  Report Type: Spontaneous
  Country: US (occurrence: None)
  Receive Date: 20231205
  Receipt Date: 20231205
  Transmission Date: 20240110
  Serious: No
  Sender: FDA-Public Use
  Company Number: None

PATIENT
  Age: 65 Year
  Sex: Female

DRUGS (1)
  1. COSENTYX [Suspect]
     Active Substance: SECUKINUMAB
     Indication: Psoriasis
     Dosage: INJECT 300MG(1 PEN)  SUBCUTANEOUSLY ONCE A WEEK FOR  5 WEEKS  AS  DIRECTED.
     Route: 058
     Dates: start: 202310

REACTIONS (1)
  - Influenza [None]
